FAERS Safety Report 21719104 (Version 1)
Quarter: 2022Q4

REPORT INFORMATION
  Report Type: Spontaneous
  Country: FR (occurrence: FR)
  Receive Date: 20221213
  Receipt Date: 20221213
  Transmission Date: 20230113
  Serious: Yes (Death)
  Sender: FDA-Public Use
  Company Number: FR-BAXTER-2022BAX026363

PATIENT
  Age: 70 Year
  Sex: Female

DRUGS (3)
  1. CYCLOPHOSPHAMIDE [Suspect]
     Active Substance: CYCLOPHOSPHAMIDE
     Indication: Product used for unknown indication
     Dosage: UNK (TREATMENT LINE NUMBER 5, DURATION: 5.4 MONTHS)
     Route: 065
     Dates: end: 20220225
  2. DEXAMETHASONE [Suspect]
     Active Substance: DEXAMETHASONE
     Indication: Product used for unknown indication
     Dosage: UNK (TREATMENT LINE NUMBER 5, DURATION: 5.4 MONTHS)
     Route: 065
     Dates: end: 20220225
  3. BORTEZOMIB [Suspect]
     Active Substance: BORTEZOMIB
     Indication: Product used for unknown indication
     Dosage: UNK (TREATMENT LINE NUMBER 5, DURATION: 5.4 MONTHS)
     Route: 065
     Dates: end: 20220225

REACTIONS (1)
  - Disease progression [Fatal]
